FAERS Safety Report 8389635-1 (Version None)
Quarter: 2012Q2

REPORT INFORMATION
  Report Type: 
  Country: None (occurrence: None)
  Receive Date: 20120528
  Receipt Date: 20120517
  Transmission Date: 20120825
  Serious: Yes (Other)
  Sender: FDA-Public Use
  Company Number: US-ROCHE-1070281

PATIENT
  Age: 65 Year
  Sex: Female
  Weight: 81.72 kg

DRUGS (5)
  1. FLAGYL [Concomitant]
     Indication: CLOSTRIDIAL INFECTION
     Dosage: DOSE:UNKNOWN
     Route: 048
     Dates: start: 20120301
  2. HERCEPTIN [Suspect]
     Indication: BREAST CANCER
     Dosage: DOSE:UNKNOWN
     Route: 042
     Dates: start: 20120101
  3. TAXOTERE [Concomitant]
     Indication: BREAST CANCER
     Dosage: DOSE:UNKNOWN
     Route: 042
     Dates: start: 20120101, end: 20120401
  4. HYDROCHLOROTHIAZIDE [Concomitant]
     Indication: OEDEMA
     Dosage: DOSE:UNKNOWN
     Route: 048
  5. VANCOMYCIN [Concomitant]
     Indication: CLOSTRIDIAL INFECTION
     Dosage: DOSE:UNKNOWN
     Route: 048
     Dates: start: 20120501

REACTIONS (8)
  - SWELLING [None]
  - DIARRHOEA [None]
  - FATIGUE [None]
  - WEIGHT INCREASED [None]
  - OROPHARYNGEAL PAIN [None]
  - DRY MOUTH [None]
  - DYSGEUSIA [None]
  - EJECTION FRACTION DECREASED [None]
